FAERS Safety Report 17386625 (Version 1)
Quarter: 2020Q1

REPORT INFORMATION
  Report Type: Spontaneous
  Country: AU (occurrence: AU)
  Receive Date: 20200206
  Receipt Date: 20200206
  Transmission Date: 20200409
  Serious: Yes (Other)
  Sender: FDA-Public Use
  Company Number: AU-MYLANLABS-2020M1012949

PATIENT
  Age: 47 Year
  Sex: Male

DRUGS (1)
  1. CLOZARIL [Suspect]
     Active Substance: CLOZAPINE
     Indication: SCHIZOPHRENIA
     Dosage: 650 MILLIGRAM
     Route: 048
     Dates: start: 19990301

REACTIONS (7)
  - Blood phosphorus increased [Unknown]
  - Blood potassium increased [Unknown]
  - Aspartate aminotransferase increased [Unknown]
  - Blood lactate dehydrogenase increased [Unknown]
  - Alanine aminotransferase increased [Unknown]
  - Hepatocellular injury [Unknown]
  - Antipsychotic drug level above therapeutic [Not Recovered/Not Resolved]

NARRATIVE: CASE EVENT DATE: 20190909
